FAERS Safety Report 12094170 (Version 1)
Quarter: 2016Q1

REPORT INFORMATION
  Report Type: Spontaneous
  Country: US (occurrence: US)
  Receive Date: 20160219
  Receipt Date: 20160219
  Transmission Date: 20160526
  Serious: No
  Sender: FDA-Public Use
  Company Number: US-009507513-1602USA008588

PATIENT
  Age: 26 Year
  Sex: Female
  Weight: 138.32 kg

DRUGS (1)
  1. NEXPLANON [Suspect]
     Active Substance: ETONOGESTREL
     Indication: CONTRACEPTION
     Dosage: 68 MG/THREE YEARS
     Route: 059
     Dates: start: 20131107, end: 20160216

REACTIONS (5)
  - Headache [Unknown]
  - Product quality issue [Unknown]
  - Weight increased [Unknown]
  - Menorrhagia [Unknown]
  - Device breakage [Unknown]

NARRATIVE: CASE EVENT DATE: 20160216
